FAERS Safety Report 8560945-8 (Version None)
Quarter: 2012Q3

REPORT INFORMATION
  Report Type: 
  Country: None (occurrence: None)
  Receive Date: 20120727
  Receipt Date: 20120727
  Transmission Date: 20120928
  Serious: Yes (Hospitalization)
  Sender: FDA-Public Use
  Company Number: None

PATIENT
  Age: 65 Year
  Sex: Female
  Weight: 85 kg

DRUGS (14)
  1. FENTANYL [Suspect]
     Indication: PAIN
     Dosage: 25MCG Q3DAY PO RECENT
     Route: 048
  2. METFORMIN HYDROCHLORIDE [Concomitant]
  3. DESIPRAMINE [Concomitant]
  4. EFFEXOR [Suspect]
  5. OMEPRAZOLE [Concomitant]
  6. DESIPRAMINE HCL [Suspect]
     Indication: PAIN
     Dosage: 25MG QHS PO
     Route: 048
  7. TRAZODONE HYDROCHLORIDE [Suspect]
     Indication: PAIN
     Dosage: 500MG QHS PO
     Route: 048
  8. IBUPROFEN [Concomitant]
  9. COZAAR [Concomitant]
  10. SIMVASTATIN [Concomitant]
  11. TIOTROPIUM [Concomitant]
  12. BACLOFEN [Concomitant]
  13. XANAX [Suspect]
     Indication: PAIN
     Dosage: 1-1.5MG QD PO
     Route: 048
  14. ZOFRAN [Concomitant]

REACTIONS (2)
  - APHASIA [None]
  - ENCEPHALOPATHY [None]
